FAERS Safety Report 24111169 (Version 3)
Quarter: 2024Q4

REPORT INFORMATION
  Report Type: Spontaneous
  Country: JP (occurrence: JP)
  Receive Date: 20240718
  Receipt Date: 20241223
  Transmission Date: 20250115
  Serious: Yes (Death, Hospitalization, Other)
  Sender: EMD SERONO INC
  Company Number: JP-Merck Healthcare KGaA-2024038076

PATIENT
  Age: 85 Year
  Sex: Female
  Weight: 55 kg

DRUGS (1)
  1. BAVENCIO [Suspect]
     Active Substance: AVELUMAB
     Indication: Malignant neoplasm of renal pelvis
     Dosage: 10 MG/KG
     Dates: start: 20240516, end: 202406

REACTIONS (3)
  - Cytokine release syndrome [Recovering/Resolving]
  - Atrioventricular block complete [Recovered/Resolved]
  - Disease progression [Fatal]

NARRATIVE: CASE EVENT DATE: 20240524
